FAERS Safety Report 11514456 (Version 1)
Quarter: 2015Q3

REPORT INFORMATION
  Report Type: Spontaneous
  Country: JP (occurrence: JP)
  Receive Date: 20150916
  Receipt Date: 20150916
  Transmission Date: 20151125
  Serious: Yes (Hospitalization)
  Sender: FDA-Public Use
  Company Number: JP-ASTRAZENECA-2015SE88091

PATIENT
  Age: 55 Year
  Sex: Female

DRUGS (2)
  1. BISOLVON [Suspect]
     Active Substance: BROMHEXINE HYDROCHLORIDE
     Dosage: DOSE UNKNOWN
     Route: 065
     Dates: start: 20150908, end: 20150908
  2. PULMICORT TURBUHALER [Suspect]
     Active Substance: BUDESONIDE
     Indication: ASTHMA
     Route: 055
     Dates: start: 20150908, end: 20150908

REACTIONS (3)
  - Pharyngeal oedema [Unknown]
  - Dyspnoea [Recovered/Resolved]
  - Nausea [Unknown]

NARRATIVE: CASE EVENT DATE: 20150908
